FAERS Safety Report 4777446-5 (Version None)
Quarter: 2005Q3

REPORT INFORMATION
  Report Type: 
  Country: None (occurrence: None)
  Receive Date: 20050923
  Receipt Date: 20050420
  Transmission Date: 20060218
  Serious: Yes (Disabling)
  Sender: FDA-Public Use
  Company Number: PHNR2005AU00796

PATIENT
  Age: 46 Year
  Sex: Female

DRUGS (8)
  1. ZOMETA [Suspect]
     Indication: METASTASES TO BONE
     Dosage: 4MG MONTHLY
     Dates: start: 20031110, end: 20050105
  2. AREDIA [Suspect]
     Dosage: 90 MG
     Dates: start: 19990901, end: 20031001
  3. PACLITAXEL [Concomitant]
     Indication: BREAST CANCER METASTATIC
     Dosage: WEEKLY
     Dates: start: 20030301
  4. DEXMETHSONE [Concomitant]
     Dosage: 1 MG, QD
     Dates: start: 20000124
  5. WARFARIN SODIUM [Concomitant]
  6. VINORELBINE [Concomitant]
     Indication: BREAST CANCER METASTATIC
     Dosage: WEEKLY
     Dates: start: 20030301
  7. HERCEPTIN [Concomitant]
     Indication: BREAST CANCER METASTATIC
     Dosage: WEEKLY
     Dates: start: 20030301
  8. CHEMOTHERAPEUTICS,OTHER [Concomitant]
     Dates: start: 20000105

REACTIONS (7)
  - ASEPTIC NECROSIS BONE [None]
  - IMPAIRED HEALING [None]
  - JAW DISORDER [None]
  - ORAL MUCOSAL DISORDER [None]
  - OSTEONECROSIS [None]
  - PAIN IN JAW [None]
  - TOOTH EXTRACTION [None]
